FAERS Safety Report 7760789-0 (Version None)
Quarter: 2011Q3

REPORT INFORMATION
  Report Type: 
  Country: None (occurrence: None)
  Receive Date: 20110919
  Receipt Date: 20110914
  Transmission Date: 20111222
  Serious: Yes (Death, Life-Threatening)
  Sender: FDA-Public Use
  Company Number: US-ASTRAZENECA-2011SE50422

PATIENT
  Age: 82 Year
  Sex: Female

DRUGS (10)
  1. ATENOLOL [Concomitant]
  2. NAMENDA [Concomitant]
  3. SEROQUEL [Suspect]
     Route: 048
     Dates: start: 20110201
  4. SEROQUEL [Suspect]
     Indication: SLEEP DISORDER
     Route: 048
     Dates: start: 20110201
  5. REGLAN [Concomitant]
  6. AMLODIPINE [Concomitant]
  7. CLONAZEPAM [Concomitant]
  8. HYDROXYZINE HCL [Concomitant]
  9. ARICEPT [Concomitant]
     Dosage: UNKNOWN DOSE DAILY
  10. ASPIRIN [Concomitant]

REACTIONS (3)
  - WRONG TECHNIQUE IN DRUG USAGE PROCESS [None]
  - OFF LABEL USE [None]
  - DEMENTIA ALZHEIMER'S TYPE [None]
